FAERS Safety Report 20693360 (Version 1)
Quarter: 2022Q2

REPORT INFORMATION
  Report Type: Spontaneous
  Country: PL (occurrence: PL)
  Receive Date: 20220410
  Receipt Date: 20220410
  Transmission Date: 20220721
  Serious: Yes (Hospitalization)
  Sender: FDA-Public Use
  Company Number: PL-NOVARTISPH-NVSC2022PL076725

PATIENT
  Sex: Male

DRUGS (26)
  1. CYCLOSPORINE [Suspect]
     Active Substance: CYCLOSPORINE
     Indication: Still^s disease
     Dosage: 100 MG, QD
     Route: 065
     Dates: start: 2015
  2. CYCLOSPORINE [Suspect]
     Active Substance: CYCLOSPORINE
     Dosage: 3 MG/KG, QD (3MG/KG/DAY)
     Route: 065
  3. PREDNISONE [Suspect]
     Active Substance: PREDNISONE
     Indication: Product used for unknown indication
     Dosage: 40 MG, QD
     Route: 065
     Dates: start: 2015
  4. PREDNISONE [Suspect]
     Active Substance: PREDNISONE
     Dosage: 20 MG
     Route: 065
  5. PREDNISONE [Suspect]
     Active Substance: PREDNISONE
     Dosage: UNK (0.5 MG/KG)
     Route: 065
  6. PREDNISONE [Suspect]
     Active Substance: PREDNISONE
     Dosage: 20 MG
     Route: 065
     Dates: start: 201703
  7. PREDNISONE [Suspect]
     Active Substance: PREDNISONE
     Dosage: UNK QD (30-15 MG/DAY)
     Route: 065
     Dates: start: 201909
  8. PREDNISONE [Suspect]
     Active Substance: PREDNISONE
     Dosage: UNK QD, ({ 15MG/DAY)
     Route: 065
  9. PREDNISONE [Suspect]
     Active Substance: PREDNISONE
     Dosage: 5 MG, QD
     Route: 065
  10. PREDNISONE [Suspect]
     Active Substance: PREDNISONE
     Dosage: 25 MG, QD
     Route: 065
  11. PREDNISONE [Suspect]
     Active Substance: PREDNISONE
     Dosage: 5 MG (EVERY 14 DAYS)
     Route: 065
  12. PREDNISONE [Suspect]
     Active Substance: PREDNISONE
     Dosage: 60 MG, QD (60 MG/DAY)
     Route: 065
  13. PREDNISONE [Suspect]
     Active Substance: PREDNISONE
     Dosage: 45 MG, QD (45MG/DAY)
     Route: 065
  14. PREDNISONE [Suspect]
     Active Substance: PREDNISONE
     Dosage: 5 MG (EVERY 3-5 DAY)
     Route: 065
  15. PREDNISONE [Suspect]
     Active Substance: PREDNISONE
     Dosage: 10 MG, QD
     Route: 065
  16. PREDNISONE [Suspect]
     Active Substance: PREDNISONE
     Dosage: 2.5 MG, QW (EVERY 7 DAYS)
     Route: 065
  17. PREDNISONE [Suspect]
     Active Substance: PREDNISONE
     Dosage: 5 MG, QD
     Route: 065
  18. PREDNISONE [Suspect]
     Active Substance: PREDNISONE
     Dosage: 12.5 MG, QW (EVERY 7 DAYS)
     Route: 065
  19. PREDNISONE [Suspect]
     Active Substance: PREDNISONE
     Dosage: 2.5 MG, QW (EVERY 7 DAYS)
     Route: 065
  20. PREDNISONE [Suspect]
     Active Substance: PREDNISONE
     Dosage: 2.5 MG, (EVERY 2 DAYS FOR 14 DAYS)
     Route: 065
  21. SOLU-MEDROL [Suspect]
     Active Substance: METHYLPREDNISOLONE SODIUM SUCCINATE
     Indication: Still^s disease
     Dosage: 250 MG, TID (3 X 250 MG)
     Route: 065
     Dates: start: 201512
  22. IMUNOGLOBULIN [Concomitant]
     Dosage: UNK
     Route: 042
  23. ILARIS [Concomitant]
     Active Substance: CANAKINUMAB
     Indication: Product used for unknown indication
     Dosage: (2 INJECTIONS OF 150 MG)
     Route: 058
     Dates: start: 20211130
  24. ILARIS [Concomitant]
     Active Substance: CANAKINUMAB
     Dosage: (2 INJECTIONS OF 150 MG)
     Route: 058
     Dates: start: 20211228
  25. ILARIS [Concomitant]
     Active Substance: CANAKINUMAB
     Dosage: (2 INJECTIONS OF 150 MG)
     Route: 058
     Dates: start: 20210125
  26. ILARIS [Concomitant]
     Active Substance: CANAKINUMAB
     Dosage: (2 INJECTIONS OF 150 MG)
     Route: 065
     Dates: start: 20220223

REACTIONS (14)
  - Haemorrhage subcutaneous [Unknown]
  - Epistaxis [Unknown]
  - Thrombocytopenia [Unknown]
  - Arthralgia [Unknown]
  - Pain in extremity [Unknown]
  - Naevus flammeus [Unknown]
  - Joint swelling [Unknown]
  - Arthritis [Recovered/Resolved]
  - Pyrexia [Unknown]
  - Rash [Unknown]
  - Myalgia [Unknown]
  - Asthenia [Unknown]
  - Malaise [Unknown]
  - Fatigue [Unknown]

NARRATIVE: CASE EVENT DATE: 20151201
